FAERS Safety Report 6569081-3 (Version None)
Quarter: 2010Q1

REPORT INFORMATION
  Report Type: 
  Country: None (occurrence: None)
  Receive Date: 20100203
  Receipt Date: 20091105
  Transmission Date: 20100710
  Serious: Yes (Other)
  Sender: FDA-Public Use
  Company Number: US-PFIZER INC-2009264291

PATIENT
  Sex: Female
  Weight: 79.819 kg

DRUGS (4)
  1. LYRICA [Suspect]
     Indication: HERPES ZOSTER
     Dosage: 75 MG, 2X/DAY
     Route: 048
     Dates: start: 20090409
  2. LYRICA [Suspect]
     Indication: POST HERPETIC NEURALGIA
  3. GABAPENTIN [Suspect]
     Indication: HERPES ZOSTER
     Dosage: UNK
  4. TRAMADOL [Suspect]
     Indication: HERPES ZOSTER
     Dosage: UNK

REACTIONS (5)
  - CONSTIPATION [None]
  - DRUG INEFFECTIVE [None]
  - MENTAL STATUS CHANGES [None]
  - OEDEMA PERIPHERAL [None]
  - THINKING ABNORMAL [None]
